FAERS Safety Report 8613441 (Version 2)
Quarter: 2012Q4

REPORT INFORMATION
  Report Type: 
  Country: US (occurrence: US)
  Receive Date: 20120613
  Receipt Date: 20120925
  Transmission Date: 20130627
  Serious: Yes (Hospitalization)
  Sender: FDA-Public Use
  Company Number: US-RB-041137-12

PATIENT
  Age: 48 Year
  Sex: Male

DRUGS (6)
  1. SUBOXONE TABLET [Suspect]
     Indication: DRUG DEPENDENCE
     Dosage: 16 mg daily intermittently
     Route: 060
     Dates: start: 2007, end: 2010
  2. SUBOXONE FILM [Suspect]
     Indication: DRUG DEPENDENCE
     Dosage: Suboxone film; 16 mg daily intermittently
     Route: 060
     Dates: start: 2010, end: 2012
  3. METOPROLOL [Suspect]
     Indication: HYPERTENSION
     Dosage: Dose details not provided
     Route: 048
     Dates: start: 2010
  4. AMITRIPTYLINE [Suspect]
     Indication: INSOMNIA
     Dosage: Dose details not provided
     Route: 048
     Dates: start: 2011
  5. LORAZEPAM [Suspect]
     Indication: ANXIETY
     Dosage: Dose details not provided
     Route: 048
     Dates: start: 2011
  6. HEROIN [Suspect]
     Indication: DRUG DEPENDENCE
     Dosage: Dose details not provided
     Route: 042
     Dates: start: 2012

REACTIONS (7)
  - Substance abuse [Recovered/Resolved]
  - Abnormal behaviour [Recovered/Resolved]
  - Confusional state [Recovered/Resolved]
  - Cognitive disorder [Recovered/Resolved]
  - Overdose [Recovered/Resolved]
  - Drug withdrawal syndrome [Recovered/Resolved]
  - Drug dependence [Not Recovered/Not Resolved]
